FAERS Safety Report 8130130-2 (Version None)
Quarter: 2012Q1

REPORT INFORMATION
  Report Type: 
  Country: None (occurrence: None)
  Receive Date: 20120210
  Receipt Date: 20120203
  Transmission Date: 20120608
  Serious: Yes (Hospitalization)
  Sender: FDA-Public Use
  Company Number: US-ABBOTT-12P-163-0901138-00

PATIENT
  Sex: Male
  Weight: 57.204 kg

DRUGS (3)
  1. CREON [Suspect]
     Indication: PANCREATITIS
     Dates: start: 20111101
  2. COUMADIN [Concomitant]
     Indication: PRODUCT USED FOR UNKNOWN INDICATION
  3. ALLERGY MEDICATIONS [Concomitant]
     Indication: HYPERSENSITIVITY

REACTIONS (1)
  - PANCREATIC DUCT OBSTRUCTION [None]
